FAERS Safety Report 7511796-4 (Version None)
Quarter: 2011Q2

REPORT INFORMATION
  Report Type: 
  Country: None (occurrence: None)
  Receive Date: 20110531
  Receipt Date: 20110421
  Transmission Date: 20111010
  Serious: No
  Sender: FDA-Public Use
  Company Number: US-JNJFOC-20110411388

PATIENT
  Sex: Female
  Weight: 95.26 kg

DRUGS (4)
  1. COGENTIN [Concomitant]
     Route: 048
  2. INVEGA [Suspect]
     Indication: SCHIZOPHRENIA
     Route: 048
     Dates: start: 20110211
  3. INVEGA [Suspect]
     Route: 048
     Dates: start: 20110415
  4. LEVOTHYROXINE SODIUM [Concomitant]
     Indication: HYPOTHYROIDISM
     Route: 048

REACTIONS (4)
  - BLOOD CHOLESTEROL INCREASED [None]
  - VITAMIN D DEFICIENCY [None]
  - DYSKINESIA [None]
  - DELUSION [None]
